FAERS Safety Report 5177061-8 (Version None)
Quarter: 2006Q4

REPORT INFORMATION
  Report Type: 
  Country: None (occurrence: None)
  Receive Date: 20061218
  Receipt Date: 20061211
  Transmission Date: 20070319
  Serious: Yes (Other)
  Sender: FDA-Public Use
  Company Number: JP-JPN-A200605290

PATIENT
  Age: 59 Year

DRUGS (2)
  1. FLUTIDE [Suspect]
     Route: 055
  2. KIPRES [Concomitant]
     Route: 048

REACTIONS (6)
  - ALLERGIC GRANULOMATOUS ANGIITIS [None]
  - BLOOD DISORDER [None]
  - CYANOSIS [None]
  - EOSINOPHILIA [None]
  - OEDEMA [None]
  - SENSORY DISTURBANCE [None]
